FAERS Safety Report 7642251-9 (Version None)
Quarter: 2011Q3

REPORT INFORMATION
  Report Type: 
  Country: None (occurrence: None)
  Receive Date: 20110728
  Receipt Date: 20110725
  Transmission Date: 20111222
  Serious: Yes (Death, Hospitalization)
  Sender: FDA-Public Use
  Company Number: PHHO2011DE12649

PATIENT
  Sex: Male
  Weight: 92 kg

DRUGS (8)
  1. SODIUM CHLORIDE [Concomitant]
     Indication: INAPPROPRIATE ANTIDIURETIC HORMONE SECRETION
  2. LANTUS [Concomitant]
     Indication: DIABETES MELLITUS
  3. DEXAMETHASONE [Concomitant]
     Indication: METASTASIS
  4. HUMALOG [Concomitant]
     Indication: DIABETES MELLITUS
  5. PACLITAXEL [Suspect]
     Indication: LARGE CELL CARCINOMA OF THE RESPIRATORY TRACT STAGE UNSPECIFIED
     Dosage: EVERY 21 DAYS
     Route: 042
     Dates: start: 20110715
  6. AFINITOR [Suspect]
     Indication: LARGE CELL CARCINOMA OF THE RESPIRATORY TRACT STAGE UNSPECIFIED
     Dosage: 5 MG, DAILY
     Route: 048
     Dates: start: 20110715
  7. CARBOPLATIN [Suspect]
     Indication: LARGE CELL CARCINOMA OF THE RESPIRATORY TRACT STAGE UNSPECIFIED
     Dosage: EVERY 21 DAYS
     Route: 042
     Dates: start: 20110715
  8. TAMSULOSIN HCL [Concomitant]
     Indication: BENIGN PROSTATIC HYPERPLASIA

REACTIONS (2)
  - SEPSIS [None]
  - MULTI-ORGAN FAILURE [None]
